FAERS Safety Report 26091929 (Version 1)
Quarter: 2025Q4

REPORT INFORMATION
  Report Type: Spontaneous
  Country: SG (occurrence: SG)
  Receive Date: 20251126
  Receipt Date: 20251126
  Transmission Date: 20260118
  Serious: Yes (Other)
  Sender: REGENERON
  Company Number: SG-BAYER-2025A153686

PATIENT
  Sex: Male

DRUGS (1)
  1. EYLEA HD [Suspect]
     Active Substance: AFLIBERCEPT
     Indication: Neovascular age-related macular degeneration
     Dosage: 8MG, AT ONE GO, SOLUTION FOR INJECTION, 114.3 MG/ML
     Dates: start: 20251105

REACTIONS (1)
  - Blindness [Recovered/Resolved]
